FAERS Safety Report 10984433 (Version 4)
Quarter: 2015Q2

REPORT INFORMATION
  Report Type: Report from Study
  Country: HU (occurrence: HU)
  Receive Date: 20150403
  Receipt Date: 20150621
  Transmission Date: 20150821
  Serious: Yes (Death, Hospitalization, Other)
  Sender: FDA-Public Use
  Company Number: HU-B.I. PHARMACEUTICALS,INC./RIDGEFIELD-2015-BI-17234BI

PATIENT
  Age: 85 Year
  Sex: Male
  Weight: 78 kg

DRUGS (2)
  1. LINAGLIPTIN [Suspect]
     Active Substance: LINAGLIPTIN
     Indication: TYPE 2 DIABETES MELLITUS
     Dosage: 5 MG
     Route: 048
     Dates: start: 20140123, end: 20150209
  2. HUMULIN M3 [Suspect]
     Active Substance: INSULIN HUMAN
     Indication: DIABETES MELLITUS
     Dosage: 40 U
     Route: 058
     Dates: start: 20131022, end: 20150211

REACTIONS (3)
  - Hypoglycaemia [Unknown]
  - Prostate cancer [Unknown]
  - Bronchopneumonia [Fatal]

NARRATIVE: CASE EVENT DATE: 20141013
